FAERS Safety Report 9170469 (Version 1)
Quarter: 2013Q1

REPORT INFORMATION
  Report Type: Spontaneous
  Country: US (occurrence: None)
  Receive Date: 20130315
  Receipt Date: 20130315
  Transmission Date: 20140127
  Serious: Yes (Other)
  Sender: FDA-Public Use
  Company Number: None

PATIENT
  Age: 47 Year
  Sex: Female
  Weight: 98.88 kg

DRUGS (1)
  1. HUMAN CHORIONIC GONADOTROPIN [Suspect]
     Indication: OBESITY
     Route: 023
     Dates: start: 20110515, end: 20110522

REACTIONS (4)
  - Crying [None]
  - Adnexa uteri pain [None]
  - Oophorectomy [None]
  - Hysterectomy [None]
